FAERS Safety Report 9129649 (Version 2)
Quarter: 2013Q2

REPORT INFORMATION
  Report Type: Spontaneous
  Country: US (occurrence: US)
  Receive Date: 20130228
  Receipt Date: 20130409
  Transmission Date: 20140414
  Serious: Yes (Other)
  Sender: FDA-Public Use
  Company Number: US-PFIZER INC-2013070621

PATIENT
  Sex: 0

DRUGS (2)
  1. LYRICA [Suspect]
     Indication: FIBROMYALGIA
     Dosage: 75 MG
  2. LYRICA [Suspect]
     Indication: SPINAL COLUMN STENOSIS

REACTIONS (4)
  - Pain [Unknown]
  - Gait disturbance [Unknown]
  - Off label use [Recovered/Resolved]
  - Memory impairment [Unknown]
